FAERS Safety Report 25001119 (Version 1)
Quarter: 2025Q1

REPORT INFORMATION
  Report Type: Spontaneous
  Country: IT (occurrence: IT)
  Receive Date: 20250222
  Receipt Date: 20250222
  Transmission Date: 20250408
  Serious: Yes (Other)
  Sender: IPSEN BIOPHARMACEUTICALS, INC.
  Company Number: IT-IPSEN Group, Research and Development-2025-03943

PATIENT
  Age: 7 Year
  Sex: Female
  Weight: 44.35 kg

DRUGS (1)
  1. LANREOTIDE [Suspect]
     Active Substance: LANREOTIDE
     Indication: Pituitary tumour benign
     Route: 058

REACTIONS (5)
  - Insulin resistance [Unknown]
  - Blood glucose increased [Unknown]
  - Headache [Unknown]
  - Off label use [Unknown]
  - Treatment failure [Unknown]
